FAERS Safety Report 6906213-9 (Version None)
Quarter: 2010Q3

REPORT INFORMATION
  Report Type: 
  Country: None (occurrence: None)
  Receive Date: 20100804
  Receipt Date: 20100730
  Transmission Date: 20110219
  Serious: Yes (Hospitalization)
  Sender: FDA-Public Use
  Company Number: US-PERRIGO-10US011782

PATIENT
  Age: 70 Year
  Sex: Female
  Weight: 70.295 kg

DRUGS (4)
  1. PERMETHRIN [Suspect]
     Indication: ACARODERMATITIS
     Dosage: 1 APPLICATION, SINGLE
     Route: 061
     Dates: start: 20100618, end: 20100618
  2. PERMETHRIN [Suspect]
     Dosage: 1 APPLICATION, SINGLE
     Route: 061
     Dates: start: 20100702, end: 20100702
  3. PREDNISONE [Concomitant]
     Indication: BRONCHITIS
     Dosage: UNK, DAILY
     Route: 048
  4. ANTIBIOTICS [Concomitant]
     Indication: BRONCHITIS
     Dosage: UNK, DAILY
     Route: 048
     Dates: end: 20100701

REACTIONS (3)
  - GUILLAIN-BARRE SYNDROME [None]
  - MUSCULAR WEAKNESS [None]
  - PARAESTHESIA [None]
